FAERS Safety Report 5636056-8 (Version None)
Quarter: 2008Q1

REPORT INFORMATION
  Report Type: 
  Country: None (occurrence: None)
  Receive Date: 20080220
  Receipt Date: 20080220
  Transmission Date: 20080703
  Serious: Yes (Disabling)
  Sender: FDA-Public Use
  Company Number: None

PATIENT
  Age: 62 Year
  Sex: Male
  Weight: 68 kg

DRUGS (1)
  1. RITUXIMAB 656 MG [Suspect]
     Indication: LYMPHOMA
     Dosage: 656 MG 50 ML/HR Q 30 MIN IV
     Route: 042
     Dates: start: 20080215, end: 20080215

REACTIONS (8)
  - CREPITATIONS [None]
  - HYPERTENSION [None]
  - INFUSION RELATED REACTION [None]
  - LUNG INFILTRATION [None]
  - PYREXIA [None]
  - RESPIRATORY DISTRESS [None]
  - TACHYCARDIA [None]
  - WHITE BLOOD CELL COUNT INCREASED [None]
